FAERS Safety Report 10480127 (Version 2)
Quarter: 2014Q4

REPORT INFORMATION
  Report Type: Report from Study
  Country: US (occurrence: US)
  Receive Date: 20140929
  Receipt Date: 20141112
  Transmission Date: 20150528
  Serious: Yes (Hospitalization)
  Sender: FDA-Public Use
  Company Number: US-BIOGENIDEC-2014BI098824

PATIENT
  Sex: Female

DRUGS (1)
  1. AVONEX [Suspect]
     Active Substance: INTERFERON BETA-1A
     Indication: MULTIPLE SCLEROSIS
     Route: 030
     Dates: end: 2008

REACTIONS (7)
  - Multiple sclerosis [Unknown]
  - Depression [Recovered/Resolved]
  - Fall [Recovered/Resolved]
  - Spinal fusion surgery [Unknown]
  - Pneumonia [Recovered/Resolved]
  - Multiple sclerosis relapse [Unknown]
  - Nuclear magnetic resonance imaging abnormal [Not Recovered/Not Resolved]
